FAERS Safety Report 8619569-6 (Version None)
Quarter: 2012Q3

REPORT INFORMATION
  Report Type: 
  Country: None (occurrence: None)
  Receive Date: 20120824
  Receipt Date: 20120412
  Transmission Date: 20120928
  Serious: No
  Sender: FDA-Public Use
  Company Number: US-ASTRAZENECA-2012SE24418

PATIENT
  Age: 53 Year
  Sex: Female
  Weight: 151.9 kg

DRUGS (9)
  1. MUCINEX [Concomitant]
  2. PREDNISONE TAB [Concomitant]
     Route: 048
  3. AZITHROMYCIN [Concomitant]
     Route: 048
  4. SYMBICORT [Suspect]
     Indication: ASTHMA
     Dosage: 160/4.5 MCG, 2 PUFFS, TWICE DAILY
     Route: 055
  5. ALBUTEROL [Concomitant]
     Indication: ASTHMA
     Dosage: 90 MCG, 2 PUFFS, EVERY FOUR HOURS
  6. XOPENEX [Concomitant]
     Indication: ASTHMA
     Dosage: 1.25 MG PER 3 ML, EVERY 4 HOURS
  7. TESSALON [Concomitant]
     Route: 048
  8. OMEPRAZOLE [Suspect]
     Route: 048
  9. FLU VACCINE [Concomitant]

REACTIONS (13)
  - GASTROOESOPHAGEAL REFLUX DISEASE [None]
  - DEPRESSED MOOD [None]
  - OBESITY [None]
  - DYSPNOEA [None]
  - LYMPHADENOPATHY [None]
  - ADVERSE EVENT [None]
  - PRODUCTIVE COUGH [None]
  - OROPHARYNGEAL PAIN [None]
  - INTENTIONAL DRUG MISUSE [None]
  - NASAL CONGESTION [None]
  - COUGH [None]
  - RESPIRATORY DISORDER [None]
  - ASTHMA [None]
